FAERS Safety Report 8309670-9 (Version None)
Quarter: 2012Q2

REPORT INFORMATION
  Report Type: 
  Country: None (occurrence: None)
  Receive Date: 20120425
  Receipt Date: 20120417
  Transmission Date: 20120825
  Serious: Yes (Other)
  Sender: FDA-Public Use
  Company Number: US-US-EMD SERONO, INC.-7126986

PATIENT
  Sex: Female

DRUGS (1)
  1. REBIF [Suspect]
     Indication: MULTIPLE SCLEROSIS
     Route: 058
     Dates: start: 20120223

REACTIONS (6)
  - MASS [None]
  - MOOD SWINGS [None]
  - INJECTION SITE PAIN [None]
  - PELVIC PAIN [None]
  - CRYING [None]
  - INFLUENZA LIKE ILLNESS [None]
